FAERS Safety Report 4939970-1 (Version None)
Quarter: 2006Q1

REPORT INFORMATION
  Report Type: 
  Country: None (occurrence: None)
  Receive Date: 20060310
  Receipt Date: 20060307
  Transmission Date: 20060701
  Serious: Yes (Death, Life-Threatening)
  Sender: FDA-Public Use
  Company Number: US-BRISTOL-MYERS SQUIBB COMPANY-13305933

PATIENT
  Age: 24 Year
  Sex: Female
  Weight: 134 kg

DRUGS (14)
  1. CYTOXAN [Suspect]
     Route: 042
     Dates: start: 20060304, end: 20060304
  2. ZOFRAN [Concomitant]
     Indication: PREMEDICATION
     Route: 042
  3. COMPAZINE [Concomitant]
     Indication: PREMEDICATION
     Route: 042
  4. ATIVAN [Concomitant]
     Indication: PREMEDICATION
     Route: 042
  5. CEFEPIME HCL [Concomitant]
     Indication: INFECTION
     Dates: start: 20060304, end: 20060304
  6. LEVALBUTEROL HCL [Concomitant]
     Route: 055
     Dates: start: 20060301
  7. METHYLPREDNISOLONE [Concomitant]
     Route: 042
     Dates: start: 20060302
  8. VITAMIN B-12 [Concomitant]
     Dates: start: 20060304
  9. FOLIC ACID [Concomitant]
     Dates: start: 20060302
  10. COLACE [Concomitant]
     Dates: start: 20060227
  11. IMMUNE GLOBULIN (HUMAN) [Concomitant]
     Route: 042
     Dates: start: 20060302
  12. MULTI-VITAMIN [Concomitant]
     Dates: start: 20060302
  13. ASCORBIC ACID [Concomitant]
     Dates: start: 20060302
  14. PROTONIX [Concomitant]
     Dates: start: 20060302

REACTIONS (2)
  - DEATH [None]
  - OXYGEN SATURATION DECREASED [None]
